FAERS Safety Report 6988797-8 (Version None)
Quarter: 2010Q3

REPORT INFORMATION
  Report Type: 
  Country: None (occurrence: None)
  Receive Date: 20100916
  Receipt Date: 20100903
  Transmission Date: 20110219
  Serious: Yes (Other)
  Sender: FDA-Public Use
  Company Number: DE-MYLANLABS-2009S1000670

PATIENT
  Age: 80 Year
  Sex: Female
  Weight: 91 kg

DRUGS (15)
  1. CARVEDILOL [Suspect]
     Indication: HYPERTENSION
     Route: 048
  2. ENALAPRIL [Suspect]
     Indication: HYPERTENSION
     Route: 048
  3. LANTUS [Suspect]
     Indication: TYPE 2 DIABETES MELLITUS
     Route: 058
     Dates: start: 20080219, end: 20080317
  4. LANTUS [Suspect]
     Route: 058
     Dates: start: 20080317
  5. ACTRAPID INSULIN NOVO [Suspect]
     Indication: TYPE 2 DIABETES MELLITUS
     Route: 058
     Dates: start: 20080219, end: 20080317
  6. ACTRAPID INSULIN NOVO [Suspect]
     Route: 058
     Dates: start: 20080317
  7. ACETYLSALICYLIC ACID [Concomitant]
     Indication: HEART VALVE INCOMPETENCE
     Route: 048
  8. CALCIMAGON /00108001/ [Concomitant]
     Indication: OSTEOPOROSIS PROPHYLAXIS
     Route: 048
     Dates: start: 20080201
  9. L-THYROXINE /00068001/ [Concomitant]
     Indication: HYPOTHYROIDISM
     Route: 048
  10. OMEPRAZOLE [Concomitant]
     Indication: PROPHYLAXIS AGAINST GASTROINTESTINAL ULCER
     Route: 048
  11. PARACODIN N DROPS [Concomitant]
     Indication: CHRONIC OBSTRUCTIVE PULMONARY DISEASE
     Route: 048
     Dates: start: 20070111
  12. PREDNISOLON [Concomitant]
     Indication: CHRONIC OBSTRUCTIVE PULMONARY DISEASE
     Route: 048
     Dates: start: 20080101
  13. RISPERIDONE [Concomitant]
     Indication: DEMENTIA
     Route: 048
  14. ALBUTEROL SULFATE AUTOHALER [Concomitant]
     Indication: CHRONIC OBSTRUCTIVE PULMONARY DISEASE
     Dosage: INHALATION
     Route: 055
     Dates: start: 20080101
  15. TORASEMIDE [Concomitant]
     Indication: HYPERTENSION
     Route: 048

REACTIONS (2)
  - DRUG INTERACTION [None]
  - HYPOGLYCAEMIA [None]
